APPROVED DRUG PRODUCT: ZITHROMAX
Active Ingredient: AZITHROMYCIN
Strength: EQ 1GM BASE/PACKET
Dosage Form/Route: FOR SUSPENSION;ORAL
Application: N050693 | Product #001
Applicant: PFIZER CENTRAL RESEARCH
Approved: Sep 28, 1994 | RLD: Yes | RS: No | Type: DISCN